FAERS Safety Report 4913872-9 (Version None)
Quarter: 2006Q1

REPORT INFORMATION
  Report Type: 
  Country: None (occurrence: None)
  Receive Date: 20060216
  Receipt Date: 20051025
  Transmission Date: 20060701
  Serious: Yes (Hospitalization)
  Sender: FDA-Public Use
  Company Number: US-MERCK-0510USA09211

PATIENT
  Age: 52 Year
  Sex: Female
  Weight: 182 kg

DRUGS (15)
  1. VIOXX [Suspect]
     Indication: ARTHRITIS
     Route: 048
     Dates: start: 20030707, end: 20041006
  2. TENORMIN [Concomitant]
     Indication: HYPERTENSION
     Route: 065
  3. ALTACE [Concomitant]
     Indication: HYPERTENSION
     Route: 065
  4. AMITRIPTYLINE HYDROCHLORIDE [Concomitant]
     Indication: SLEEP DISORDER
     Route: 065
  5. LASIX [Concomitant]
     Indication: OEDEMA
     Route: 065
  6. GLUCOPHAGE [Concomitant]
     Indication: DIABETES MELLITUS
     Route: 065
  7. TRICOR [Concomitant]
     Indication: BLOOD CHOLESTEROL INCREASED
     Route: 065
  8. QUININE SULFATE [Concomitant]
     Indication: ARTHRITIS
     Route: 065
  9. PREMARIN [Concomitant]
     Route: 065
     Dates: start: 19900101
  10. POTASSIUM CHLORIDE [Concomitant]
     Indication: HYPOKALAEMIA
     Route: 065
  11. NITROGLYCERIN [Concomitant]
     Indication: CHEST PAIN
     Route: 065
  12. PRAVACHOL [Concomitant]
     Indication: BLOOD CHOLESTEROL INCREASED
     Route: 065
  13. DIPYRIDAMOLE [Concomitant]
     Route: 065
  14. ATENOLOL [Concomitant]
     Indication: HYPERTENSION
     Route: 065
  15. SYNTHROID [Concomitant]
     Indication: HORMONE LEVEL ABNORMAL
     Route: 065

REACTIONS (9)
  - ASTHMA [None]
  - CALCIUM DEFICIENCY [None]
  - CARDIAC FAILURE CONGESTIVE [None]
  - DEEP VEIN THROMBOSIS [None]
  - DRUG HYPERSENSITIVITY [None]
  - DYSPNOEA [None]
  - HYPERTONIC BLADDER [None]
  - NECK PAIN [None]
  - PANIC DISORDER [None]
